FAERS Safety Report 4518382-9 (Version None)
Quarter: 2004Q4

REPORT INFORMATION
  Report Type: 
  Country: None (occurrence: None)
  Receive Date: 20041029
  Receipt Date: 20040831
  Transmission Date: 20050328
  Serious: Yes (Hospitalization)
  Sender: FDA-Public Use
  Company Number: 200416547US

PATIENT

DRUGS (2)
  1. KETEK [Suspect]
  2. ZITHROMAX [Concomitant]

REACTIONS (2)
  - ANAPHYLACTIC REACTION [None]
  - OROPHARYNGEAL SWELLING [None]
